FAERS Safety Report 7087178-9 (Version None)
Quarter: 2010Q4

REPORT INFORMATION
  Report Type: 
  Country: None (occurrence: None)
  Receive Date: 20101106
  Receipt Date: 20101029
  Transmission Date: 20110411
  Serious: No
  Sender: FDA-Public Use
  Company Number: US-WYE-H18457610

PATIENT
  Age: 59 Year
  Sex: Female
  Weight: 52.66 kg

DRUGS (2)
  1. ADVIL [Suspect]
     Indication: BACK PAIN
     Dosage: 2 GELCAPS AS NEEDED
     Route: 048
  2. FLOMAX [Concomitant]

REACTIONS (2)
  - CHROMATURIA [None]
  - URINE ABNORMALITY [None]
